FAERS Safety Report 22633595 (Version 1)
Quarter: 2023Q2

REPORT INFORMATION
  Report Type: Spontaneous
  Country: TR (occurrence: TR)
  Receive Date: 20230623
  Receipt Date: 20230623
  Transmission Date: 20230721
  Serious: Yes (Hospitalization, Other)
  Sender: FDA-Public Use
  Company Number: TR-MYLANLABS-2023M1065568

PATIENT
  Age: 56 Year
  Sex: Male

DRUGS (8)
  1. FLUOROURACIL [Suspect]
     Active Substance: FLUOROURACIL
     Indication: Colon cancer
     Dosage: UNK, CYCLE (ADJUVANT MFOLFOX6 REGIMEN; TOTAL 6 CYCLES)
     Route: 065
  2. FLUOROURACIL [Suspect]
     Active Substance: FLUOROURACIL
     Dosage: UNK, FOLFIRI REGIMEN
     Route: 065
  3. LEUCOVORIN [Suspect]
     Active Substance: LEUCOVORIN
     Indication: Colon cancer
     Dosage: UNK, CYCLE (ADJUVANT MFOLFOX6 REGIMEN; TOTAL 6 CYCLES)
     Route: 065
  4. LEUCOVORIN [Suspect]
     Active Substance: LEUCOVORIN
     Dosage: UNK, FOLFIRI REGIMEN
     Route: 065
  5. OXALIPLATIN [Suspect]
     Active Substance: OXALIPLATIN
     Indication: Colon cancer
     Dosage: UNK, CYCLE (ADJUVANT MFOLFOX6 REGIMEN; TOTAL 6 CYCLES)
     Route: 065
  6. IRINOTECAN [Suspect]
     Active Substance: IRINOTECAN
     Indication: Colon cancer
     Dosage: UNK, FOLFIRI REGIMEN
     Route: 065
  7. BEVACIZUMAB [Suspect]
     Active Substance: BEVACIZUMAB
     Indication: Colon cancer
     Dosage: UNK
     Route: 065
  8. CAPECITABINE [Concomitant]
     Active Substance: CAPECITABINE
     Indication: Colon cancer
     Dosage: UNK, CYCLE, TOTAL 8 CYCLES (THERAPY COMPLETED)
     Route: 065

REACTIONS (2)
  - Toxic leukoencephalopathy [Recovered/Resolved]
  - Neutropenia [Recovered/Resolved]
